FAERS Safety Report 6815433-3 (Version None)
Quarter: 2010Q2

REPORT INFORMATION
  Report Type: 
  Country: None (occurrence: None)
  Receive Date: 20100629
  Receipt Date: 20100618
  Transmission Date: 20101027
  Serious: Yes (Other)
  Sender: FDA-Public Use
  Company Number: 2010SP034703

PATIENT
  Age: 50 Year
  Sex: Female

DRUGS (1)
  1. IMPLANON [Suspect]
     Indication: DRUG USE FOR UNKNOWN INDICATION

REACTIONS (3)
  - ALCOHOLIC LIVER DISEASE [None]
  - INCORRECT DRUG ADMINISTRATION DURATION [None]
  - LIVER FUNCTION TEST ABNORMAL [None]
